FAERS Safety Report 16285178 (Version 1)
Quarter: 2019Q2

REPORT INFORMATION
  Report Type: Spontaneous
  Country: DE (occurrence: DE)
  Receive Date: 20190508
  Receipt Date: 20190508
  Transmission Date: 20190711
  Serious: Yes (Other)
  Sender: FDA-Public Use
  Company Number: DE-ASTRAZENECA-2019SE65865

PATIENT
  Age: 83 Year
  Sex: Female
  Weight: 82 kg

DRUGS (13)
  1. IBRANCE [Suspect]
     Active Substance: PALBOCICLIB
     Indication: BREAST CANCER
     Route: 048
     Dates: start: 20190227, end: 20190315
  2. STANGYL [TRIMIPRAMINE MALEATE] [Concomitant]
     Dosage: 25 MG, 0-0-2
  3. HYDROCHLOROTHIAZIDE. [Concomitant]
     Active Substance: HYDROCHLOROTHIAZIDE
     Dosage: 25 MG, 1-0-0
     Route: 048
  4. MIRTAZAPINE. [Concomitant]
     Active Substance: MIRTAZAPINE
     Dosage: 30 MG, 0-0-1
     Route: 048
  5. ASPIRIN PROTECT [Concomitant]
     Active Substance: ASPIRIN
     Dosage: 1-0-0
     Route: 048
     Dates: end: 20190318
  6. OXAZEPAM. [Concomitant]
     Active Substance: OXAZEPAM
     Dosage: 10 MG, 0-0-1
  7. ACC [Concomitant]
     Active Substance: ACETYLCYSTEINE
     Dosage: 200 MG, 3-0-0
  8. ORTHOMOL [Concomitant]
  9. BELOC ZOK MITE [Concomitant]
     Active Substance: METOPROLOL SUCCINATE
     Dosage: 47.5 MG, 1-0-0
     Route: 048
  10. VIGANTOL [COLECALCIFEROL] [Concomitant]
     Dosage: 1000 IU, 1-0-0
  11. ROSUVASTATIN. [Suspect]
     Active Substance: ROSUVASTATIN
     Indication: CORONARY ARTERY DISEASE
     Route: 048
     Dates: start: 20190221, end: 20190315
  12. DELIX [Concomitant]
     Dosage: 5 MG, 1-0-0
     Route: 048
  13. FUROSEMIDE. [Concomitant]
     Active Substance: FUROSEMIDE
     Dosage: 40 MG, 1-0-0
     Route: 048

REACTIONS (2)
  - Pancytopenia [Recovered/Resolved]
  - Acute kidney injury [Recovered/Resolved]

NARRATIVE: CASE EVENT DATE: 20190315
